FAERS Safety Report 9230327 (Version 1)
Quarter: 2013Q2

REPORT INFORMATION
  Report Type: Spontaneous
  Country: US (occurrence: None)
  Receive Date: 20130411
  Receipt Date: 20130411
  Transmission Date: 20140414
  Serious: Yes (Death)
  Sender: FDA-Public Use
  Company Number: 2013HINLIT0073

PATIENT
  Age: 32 Year
  Sex: Male

DRUGS (3)
  1. TENOFOVIR [Suspect]
     Indication: ANTIRETROVIRAL THERAPY
  2. ATAZANAVIR [Suspect]
     Indication: ANTIRETROVIRAL THERAPY
  3. RALTEGRAVIR [Suspect]
     Indication: ANTIRETROVIRAL THERAPY

REACTIONS (2)
  - Immune reconstitution inflammatory syndrome associated Kaposi^s sarcoma [None]
  - Dyspnoea exertional [None]
